FAERS Safety Report 5694866-5 (Version None)
Quarter: 2008Q2

REPORT INFORMATION
  Report Type: 
  Country: None (occurrence: None)
  Receive Date: 20080404
  Receipt Date: 20080115
  Transmission Date: 20081010
  Serious: No
  Sender: FDA-Public Use
  Company Number: A0703364A

PATIENT
  Age: 74 Year
  Sex: Female

DRUGS (2)
  1. ADVAIR HFA [Suspect]
     Indication: ASTHMA
     Dosage: 2PUFF PER DAY
     Route: 055
     Dates: start: 20071021, end: 20071028
  2. NEBULIZER [Concomitant]

REACTIONS (1)
  - DYSPHONIA [None]
